FAERS Safety Report 8180103-9 (Version None)
Quarter: 2012Q1

REPORT INFORMATION
  Report Type: 
  Country: None (occurrence: None)
  Receive Date: 20120302
  Receipt Date: 20120302
  Transmission Date: 20120608
  Serious: Yes (Hospitalization, Other)
  Sender: FDA-Public Use
  Company Number: None

PATIENT
  Age: 67 Year
  Sex: Male
  Weight: 108.86 kg

DRUGS (1)
  1. PRAVASTATIN [Suspect]
     Dosage: 40 MG
     Route: 048
     Dates: start: 20110101, end: 20120301

REACTIONS (4)
  - TRANSIENT GLOBAL AMNESIA [None]
  - PARAESTHESIA [None]
  - VISUAL ACUITY REDUCED [None]
  - MYALGIA [None]
